FAERS Safety Report 7689226-1 (Version None)
Quarter: 2011Q3

REPORT INFORMATION
  Report Type: 
  Country: None (occurrence: None)
  Receive Date: 20110817
  Receipt Date: 20110815
  Transmission Date: 20111222
  Serious: Yes (Life-Threatening, Hospitalization)
  Sender: FDA-Public Use
  Company Number: BE-PFIZER INC-2011187678

PATIENT
  Age: 63 Year
  Sex: Female
  Weight: 60 kg

DRUGS (1)
  1. VARENICLINE TARTRATE [Suspect]
     Indication: SMOKING CESSATION THERAPY
     Dosage: UNK
     Route: 048
     Dates: start: 20110620, end: 20110703

REACTIONS (7)
  - PULMONARY OEDEMA [None]
  - MYOCARDIAL INFARCTION [None]
  - FATIGUE [None]
  - HYPERTENSION [None]
  - OEDEMA [None]
  - DYSPNOEA [None]
  - SENSE OF OPPRESSION [None]
